FAERS Safety Report 9662744 (Version 2)
Quarter: 2013Q4

REPORT INFORMATION
  Report Type: Spontaneous
  Country: US (occurrence: US)
  Receive Date: 20131031
  Receipt Date: 20131031
  Transmission Date: 20140711
  Serious: No
  Sender: FDA-Public Use
  Company Number: US-PURDUE-USA-2010-0056439

PATIENT
  Age: 75 Year
  Sex: Male

DRUGS (3)
  1. OXYCONTIN (NDA 22-272) [Suspect]
     Indication: ORTHOPAEDIC PROCEDURE
     Dosage: 80 MG, BID
  2. OXYCONTIN (NDA 22-272) [Suspect]
     Indication: STAPHYLOCOCCAL INFECTION
     Dosage: 40 MG, BID
  3. OXYCODONE HCL IR CAPSULES [Concomitant]
     Indication: BREAKTHROUGH PAIN
     Dosage: 5 MG, TID

REACTIONS (5)
  - Emotional distress [Unknown]
  - Pain [Unknown]
  - Inadequate analgesia [Unknown]
  - Asthenia [Unknown]
  - Drug effect decreased [Unknown]
